FAERS Safety Report 21750958 (Version 2)
Quarter: 2024Q1

REPORT INFORMATION
  Report Type: Other
  Country: JP (occurrence: JP)
  Receive Date: 20221219
  Receipt Date: 20240127
  Transmission Date: 20240410
  Serious: Yes (Hospitalization, Other)
  Sender: FDA-Public Use
  Company Number: JP-CHUGAI-A2021015109ROCHE

PATIENT
  Age: 76 Year
  Sex: Female

DRUGS (18)
  1. TECENTRIQ [Suspect]
     Active Substance: ATEZOLIZUMAB
     Indication: Eczema
     Dosage: 1200 MILLIGRAM
     Route: 041
     Dates: start: 20210326
  2. AVASTIN [Suspect]
     Active Substance: BEVACIZUMAB
     Indication: Non-small cell lung cancer
     Dosage: 790 MILLIGRAM
     Route: 041
     Dates: start: 20210326
  3. CARBOPLATIN [Suspect]
     Active Substance: CARBOPLATIN
     Indication: Non-small cell lung cancer
     Dosage: 300 MILLIGRAM
     Route: 041
     Dates: start: 20210326
  4. PACLITAXEL [Suspect]
     Active Substance: PACLITAXEL
     Indication: Non-small cell lung cancer
     Dosage: 220 MILLIGRAM
     Route: 041
     Dates: start: 20210326
  5. ATORVASTATIN [Concomitant]
     Active Substance: ATORVASTATIN
     Indication: Dyslipidaemia
     Route: 048
  6. ETIZOLAM [Concomitant]
     Active Substance: ETIZOLAM
     Indication: Insomnia
     Dosage: DOSE INTERVAL UNCERTAINTY
     Route: 048
  7. CARBOCYSTEINE [Concomitant]
     Active Substance: CARBOCYSTEINE
     Indication: Non-small cell lung cancer
     Route: 048
     Dates: start: 20200820
  8. DIPHENHYDRAMINE [Concomitant]
     Active Substance: DIPHENHYDRAMINE
  9. BIO-THREE [Concomitant]
     Active Substance: HERBALS
  10. CALONAL [Concomitant]
     Active Substance: ACETAMINOPHEN
  11. FEXOFENADINE HYDROCHLORIDE [Concomitant]
     Active Substance: FEXOFENADINE HYDROCHLORIDE
     Indication: Eczema
     Route: 048
     Dates: start: 20210401
  12. MAGNESIUM OXIDE [Concomitant]
     Active Substance: MAGNESIUM OXIDE
     Indication: Prophylaxis
     Route: 048
     Dates: start: 20210328
  13. GASTER [Concomitant]
     Active Substance: FAMOTIDINE
  14. DEXAMETHASONE SODIUM PHOSPHATE [Concomitant]
     Active Substance: DEXAMETHASONE PHOSPHATE\DEXAMETHASONE SODIUM PHOSPHATE
  15. ALOXI [Concomitant]
     Active Substance: PALONOSETRON HYDROCHLORIDE
  16. FML [Concomitant]
     Active Substance: FLUOROMETHOLONE
  17. PIRENOXINE [Concomitant]
     Active Substance: PIRENOXINE
  18. BETAMETHASONE BUTYRATE PROPIONATE [Concomitant]
     Active Substance: BETAMETHASONE BUTYRATE PROPIONATE
     Indication: Eczema
     Dosage: PROPER QUANTITY/DAY
     Route: 065

REACTIONS (24)
  - Febrile neutropenia [Recovered/Resolved]
  - Adrenal insufficiency [Unknown]
  - Hyperkalaemia [Unknown]
  - Constipation [Unknown]
  - Alopecia [Unknown]
  - White blood cell count decreased [Unknown]
  - Platelet count decreased [Unknown]
  - Anaemia [Unknown]
  - Myalgia [Unknown]
  - Hyponatraemia [Unknown]
  - Arthralgia [Unknown]
  - Headache [Unknown]
  - Pruritus [Unknown]
  - Neuropathy peripheral [Unknown]
  - Skin exfoliation [Unknown]
  - Oedema [Unknown]
  - Thyroid disorder [Unknown]
  - Oropharyngeal pain [Unknown]
  - Arthritis [Unknown]
  - Rash [Unknown]
  - Neutrophil count decreased [Unknown]
  - Rash [Unknown]
  - Proteinuria [Unknown]
  - Skin exfoliation [Unknown]

NARRATIVE: CASE EVENT DATE: 20210328
